FAERS Safety Report 10301899 (Version 1)
Quarter: 2014Q3

REPORT INFORMATION
  Report Type: Spontaneous
  Country: IT (occurrence: None)
  Receive Date: 20140709
  Receipt Date: 20140709
  Transmission Date: 20150326
  Serious: Yes (Hospitalization)
  Sender: FDA-Public Use
  Company Number: AUR-APL-2014-07141

PATIENT
  Age: 81 Year
  Sex: Female

DRUGS (9)
  1. COUMADIN /00014802/ (WARFARIN SODIUM) TABLET [Concomitant]
  2. NEBIVOLOL HYDROCHLORIDE (NEBIVOLOL HYDROCHLORIDE) [Concomitant]
  3. TRIATEC /00116401/ (CODEINE PHOSPHATE, PARACETAMOL) TABLET [Concomitant]
  4. LUVION /00252501/ (CANRENOIC ACID) TABLET [Concomitant]
  5. ALLOPURINOL (ALLOPURINOL) [Concomitant]
     Active Substance: ALLOPURINOL
  6. NORVASC (AMLODIPINE BESILATE) TABLET [Concomitant]
  7. LASIX /00032601/ (FUROSEMIDE) TABLET [Concomitant]
  8. PANTOPRAZOLE SODIUM SESQUIHYDRATE (PANTOPRAZOLE SODIUM SESQUIHYDRATE) [Concomitant]
  9. METFORMIN [Suspect]
     Active Substance: METFORMIN HYDROCHLORIDE
     Indication: PRODUCT USED FOR UNKNOWN INDICATION
     Dates: start: 20140101, end: 20140416

REACTIONS (1)
  - Hypoglycaemic coma [None]

NARRATIVE: CASE EVENT DATE: 20140416
